FAERS Safety Report 6433353-3 (Version None)
Quarter: 2009Q4

REPORT INFORMATION
  Report Type: 
  Country: None (occurrence: None)
  Receive Date: 20091105
  Receipt Date: 20091026
  Transmission Date: 20100525
  Serious: Yes (Death)
  Sender: FDA-Public Use
  Company Number: B0601154A

PATIENT
  Age: 27 Year
  Sex: Female

DRUGS (4)
  1. ZIDOVUDINE [Suspect]
     Indication: HIV INFECTION
  2. LAMIVUDINE [Suspect]
     Indication: HIV INFECTION
  3. NELFINAVIR MESYLATE [Suspect]
     Indication: HIV INFECTION
  4. EFAVIRENZ [Suspect]
     Indication: HIV INFECTION

REACTIONS (9)
  - CAESAREAN SECTION [None]
  - CEREBRAL TOXOPLASMOSIS [None]
  - CONVULSION [None]
  - DRUG EXPOSURE DURING PREGNANCY [None]
  - HEMIPARESIS [None]
  - IMMUNOSUPPRESSION [None]
  - PREMATURE LABOUR [None]
  - TOXOPLASMOSIS [None]
  - TREATMENT NONCOMPLIANCE [None]
